FAERS Safety Report 7317117-4 (Version None)
Quarter: 2011Q1

REPORT INFORMATION
  Report Type: 
  Country: None (occurrence: None)
  Receive Date: 20110226
  Receipt Date: 20100928
  Transmission Date: 20110831
  Serious: No
  Sender: FDA-Public Use
  Company Number: US-ALLERGAN-1012552US

PATIENT
  Age: 34 Year
  Sex: Female

DRUGS (1)
  1. BOTOX COSMETIC [Suspect]
     Indication: SKIN WRINKLING
     Dosage: 20 UNITS, SINGLE
     Route: 030
     Dates: start: 20100925, end: 20100925

REACTIONS (6)
  - DARK CIRCLES UNDER EYES [None]
  - COUGH [None]
  - VISION BLURRED [None]
  - FATIGUE [None]
  - ASTHMA [None]
  - ADVERSE DRUG REACTION [None]
